FAERS Safety Report 8574360 (Version 2)
Quarter: 2012Q4

REPORT INFORMATION
  Report Type: 
  Country: US (occurrence: US)
  Receive Date: 20120522
  Receipt Date: 20120921
  Transmission Date: 20130627
  Serious: No
  Sender: FDA-Public Use
  Company Number: US-PFIZER INC-2012121413

PATIENT
  Age: 39 Year
  Sex: Female
  Weight: 54.42 kg

DRUGS (6)
  1. EFFEXOR XR [Suspect]
     Indication: PANIC ATTACK
     Dosage: 300 mg, 1x/day
     Route: 048
  2. EFFEXOR XR [Suspect]
     Indication: ANXIETY
     Dosage: 150 mg, 1x/day
     Route: 048
     Dates: start: 201111
  3. EFFEXOR XR [Suspect]
     Indication: DEPRESSION
     Dosage: 75 mg, 1x/day
     Route: 048
  4. CELEXA [Suspect]
     Indication: PANIC ATTACK
     Dosage: 40 mg, 2x/day
     Dates: start: 20111201, end: 20111203
  5. CELEXA [Suspect]
     Indication: ANXIETY
  6. CELEXA [Suspect]
     Indication: DEPRESSION

REACTIONS (9)
  - Paraesthesia [Recovered/Resolved]
  - Pain [Recovered/Resolved]
  - Hyperhidrosis [Recovered/Resolved]
  - Tremor [Recovered/Resolved]
  - Mood altered [Recovered/Resolved]
  - Malaise [Recovered/Resolved]
  - Bedridden [Recovered/Resolved]
  - Drug ineffective [Unknown]
  - Drug withdrawal syndrome [Unknown]
